FAERS Safety Report 16615322 (Version 1)
Quarter: 2019Q3

REPORT INFORMATION
  Report Type: Spontaneous
  Country: US (occurrence: US)
  Receive Date: 20190610
  Receipt Date: 20190610
  Transmission Date: 20191004
  Serious: Yes (Death)
  Sender: FDA-Public Use
  Company Number: None

PATIENT
  Age: 63 Year
  Sex: Male

DRUGS (3)
  1. OCTREOTIDE 200 MCG/ML [Suspect]
     Active Substance: OCTREOTIDE
     Indication: GASTROINTESTINAL TOXICITY
     Route: 042
     Dates: start: 20180920, end: 20190607
  2. FENTANYL. [Concomitant]
     Active Substance: FENTANYL
  3. OCTREOTIDE 200 MCG/ML [Suspect]
     Active Substance: OCTREOTIDE
     Indication: COLITIS

REACTIONS (1)
  - Death [None]

NARRATIVE: CASE EVENT DATE: 20190607
